FAERS Safety Report 23428135 (Version 1)
Quarter: 2024Q1

REPORT INFORMATION
  Report Type: Spontaneous
  Country: US (occurrence: None)
  Receive Date: 20240120
  Receipt Date: 20240120
  Transmission Date: 20240409
  Serious: Yes (Hospitalization)
  Sender: FDA-Public Use
  Company Number: None

PATIENT
  Age: 50 Year
  Sex: Female

DRUGS (4)
  1. CYTARABINE [Suspect]
     Active Substance: CYTARABINE
     Dates: end: 20160829
  2. ETOPOSIDE [Suspect]
     Active Substance: ETOPOSIDE
     Dates: end: 20160829
  3. METHOTREXATE [Suspect]
     Active Substance: METHOTREXATE
     Dates: end: 20160825
  4. ONCASPAR [Suspect]
     Active Substance: PEGASPARGASE
     Dates: end: 20160829

REACTIONS (2)
  - Vascular device infection [None]
  - Staphylococcus test positive [None]

NARRATIVE: CASE EVENT DATE: 20160916
